FAERS Safety Report 9365375 (Version 3)
Quarter: 2013Q4

REPORT INFORMATION
  Report Type: Report from Study
  Country: AR (occurrence: AR)
  Receive Date: 20130625
  Receipt Date: 20131203
  Transmission Date: 20140711
  Serious: Yes (Hospitalization, Other)
  Sender: FDA-Public Use
  Company Number: AR-ROCHE-1240371

PATIENT
  Sex: Female

DRUGS (1)
  1. RANIBIZUMAB [Suspect]
     Indication: RETINAL HAEMORRHAGE
     Dosage: 1 AMPOULE
     Route: 050
     Dates: start: 20121023

REACTIONS (4)
  - Road traffic accident [Unknown]
  - Eye injury [Unknown]
  - Eye haemorrhage [Unknown]
  - Vision blurred [Not Recovered/Not Resolved]
